FAERS Safety Report 5154477-7 (Version None)
Quarter: 2006Q4

REPORT INFORMATION
  Report Type: 
  Country: None (occurrence: None)
  Receive Date: 20061114
  Receipt Date: 20061101
  Transmission Date: 20070319
  Serious: Yes (Hospitalization)
  Sender: FDA-Public Use
  Company Number: 2006118433

PATIENT
  Age: 49 Year
  Sex: Female
  Weight: 88.5 kg

DRUGS (13)
  1. SUTENT [Suspect]
     Indication: RENAL CELL CARCINOMA STAGE UNSPECIFIED
     Dosage: 50 MG (50 MG, 1 IN 1 D), ORAL
     Route: 048
     Dates: start: 20060824
  2. SENOKOT [Concomitant]
  3. DOMPERIDONE               (DOMPERIDONE) [Concomitant]
  4. MORPHINE [Concomitant]
  5. COLACE            (DOCUSATE SODIUM) [Concomitant]
  6. MORPHINE SULFATE [Concomitant]
  7. PROCHLORPERAZINE MALEATE [Concomitant]
  8. LEVOTHYROXINE SODIUM [Concomitant]
  9. PANTOPRAZOLE SODIUM [Concomitant]
  10. FEVERFEW               (HERBAL EXTRACTS NOS) [Concomitant]
  11. PREDNISONE TAB [Concomitant]
  12. LOPERAMIDE HCL [Concomitant]
  13. CONTRACEPTIVE                 (CONTRACEPTIVE) [Concomitant]

REACTIONS (3)
  - CARDIAC DISORDER [None]
  - DIARRHOEA [None]
  - GASTROOESOPHAGEAL REFLUX DISEASE [None]
